FAERS Safety Report 25813375 (Version 1)
Quarter: 2025Q3

REPORT INFORMATION
  Report Type: Spontaneous
  Country: US (occurrence: None)
  Receive Date: 20250917
  Receipt Date: 20250917
  Transmission Date: 20251021
  Serious: Yes (Other)
  Sender: FDA-CTU
  Company Number: None

PATIENT
  Age: 86 Year
  Sex: Male

DRUGS (3)
  1. ESBRIET [Suspect]
     Active Substance: PIRFENIDONE
     Indication: Idiopathic pulmonary fibrosis
     Dosage: 801 MG THREE TIMES DAILY
  2. METRONIDAZOLE [Suspect]
     Active Substance: METRONIDAZOLE
  3. CIPROFLOXACIN [Suspect]
     Active Substance: CIPROFLOXACIN

REACTIONS (3)
  - Appendicitis [None]
  - Arthralgia [None]
  - Fatigue [None]
